FAERS Safety Report 4875031-8 (Version None)
Quarter: 2006Q1

REPORT INFORMATION
  Report Type: 
  Country: None (occurrence: None)
  Receive Date: 20060104
  Receipt Date: 20051222
  Transmission Date: 20060701
  Serious: Yes (Death)
  Sender: FDA-Public Use
  Company Number: 220581

PATIENT
  Age: 56 Year
  Sex: Male

DRUGS (1)
  1. ACTIVACIN (ALTEPLASE) PWDR + SOLVENT, INFUSION SOLN [Suspect]
     Dosage: 41.37 MG, INTRAVENOUS
     Route: 042
     Dates: start: 20051109, end: 20051109

REACTIONS (1)
  - BRAIN OEDEMA [None]
